FAERS Safety Report 8345326-4 (Version None)
Quarter: 2012Q2

REPORT INFORMATION
  Report Type: 
  Country: None (occurrence: None)
  Receive Date: 20120508
  Receipt Date: 20120505
  Transmission Date: 20120825
  Serious: No
  Sender: FDA-Public Use
  Company Number: US-BAYER-2012-044735

PATIENT
  Age: 33 Year
  Sex: Female
  Weight: 104.31 kg

DRUGS (2)
  1. MAGNEVIST [Suspect]
     Indication: MIGRAINE
  2. MAGNEVIST [Suspect]
     Indication: NUCLEAR MAGNETIC RESONANCE IMAGING BRAIN
     Dosage: UNK
     Route: 042
     Dates: start: 20120412, end: 20120412

REACTIONS (1)
  - VOMITING [None]
